FAERS Safety Report 6939781-1 (Version None)
Quarter: 2010Q3

REPORT INFORMATION
  Report Type: 
  Country: None (occurrence: None)
  Receive Date: 20100825
  Receipt Date: 20100727
  Transmission Date: 20110219
  Serious: No
  Sender: FDA-Public Use
  Company Number: US-BIOGENIDEC-2010BI028830

PATIENT
  Age: 42 Year
  Sex: Female

DRUGS (7)
  1. TYSABRI [Suspect]
     Indication: MULTIPLE SCLEROSIS
     Route: 042
  2. PROZAC [Concomitant]
  3. KLONOPIN [Concomitant]
  4. LASIX [Concomitant]
  5. DETROL LA [Concomitant]
  6. BACLOFEN [Concomitant]
  7. ZANAFELX [Concomitant]

REACTIONS (6)
  - ABDOMINAL DISCOMFORT [None]
  - EAR INFECTION [None]
  - HEADACHE [None]
  - INFLUENZA LIKE ILLNESS [None]
  - MULTIPLE SCLEROSIS RELAPSE [None]
  - RESPIRATORY TRACT CONGESTION [None]
